FAERS Safety Report 11123616 (Version 4)
Quarter: 2016Q1

REPORT INFORMATION
  Report Type: Spontaneous
  Country: DE (occurrence: DE)
  Receive Date: 20150519
  Receipt Date: 20160212
  Transmission Date: 20160525
  Serious: Yes (Hospitalization, Other)
  Sender: FDA-Public Use
  Company Number: DE-009507513-1505DEU006598

PATIENT
  Age: 50 Year
  Sex: Female
  Weight: 71.5 kg

DRUGS (12)
  1. DAPTOMYCIN. [Suspect]
     Active Substance: DAPTOMYCIN
     Indication: SOFT TISSUE INFECTION
  2. DAPTOMYCIN. [Suspect]
     Active Substance: DAPTOMYCIN
     Indication: STAPHYLOCOCCAL INFECTION
  3. DAPTOMYCIN. [Suspect]
     Active Substance: DAPTOMYCIN
     Indication: INFECTED SEROMA
  4. DAPTOMYCIN. [Suspect]
     Active Substance: DAPTOMYCIN
     Indication: POST PROCEDURAL COMPLICATION
     Dosage: 7 MG/KG, QD (500 MG, QD)
     Route: 042
     Dates: start: 20150425, end: 20150508
  5. VOLTAREN [Concomitant]
     Active Substance: DICLOFENAC SODIUM
  6. LINEZOLID. [Concomitant]
     Active Substance: LINEZOLID
     Dosage: 600 MG, UNK
     Dates: start: 20150506, end: 20150603
  7. ARIXTRA [Concomitant]
     Active Substance: FONDAPARINUX SODIUM
     Dosage: 7.5 MG, UNK
     Dates: start: 20150508, end: 20150619
  8. NEXIUM [Concomitant]
     Active Substance: ESOMEPRAZOLE MAGNESIUM
     Dosage: 20 OT
  9. IMIPENEM [Concomitant]
     Active Substance: IMIPENEM
     Dosage: UNK
     Dates: start: 20150429, end: 20150506
  10. AUGMENTAN [Concomitant]
     Active Substance: AMOXICILLIN\CLAVULANATE POTASSIUM
     Dosage: 875/125 OT
     Dates: start: 20150508, end: 20150603
  11. DAPTOMYCIN. [Suspect]
     Active Substance: DAPTOMYCIN
     Indication: ENTEROCOCCAL INFECTION
  12. MEROPENEM. [Concomitant]
     Active Substance: MEROPENEM
     Dosage: UNK
     Dates: start: 20150425, end: 20150428

REACTIONS (13)
  - Asthma exercise induced [Not Recovered/Not Resolved]
  - Heart rate increased [Unknown]
  - Discomfort [Unknown]
  - Vena cava thrombosis [Unknown]
  - Fatigue [Unknown]
  - Breath sounds abnormal [Unknown]
  - Alveolitis [Unknown]
  - C-reactive protein increased [Recovering/Resolving]
  - Musculoskeletal pain [Unknown]
  - Eosinophilic pneumonia [Unknown]
  - White blood cell count increased [Recovered/Resolved]
  - Orthostatic hypotension [Unknown]
  - Jugular vein thrombosis [Unknown]

NARRATIVE: CASE EVENT DATE: 2015
